FAERS Safety Report 8328612-3 (Version None)
Quarter: 2012Q2

REPORT INFORMATION
  Report Type: 
  Country: None (occurrence: None)
  Receive Date: 20120430
  Receipt Date: 20120413
  Transmission Date: 20120825
  Serious: Yes (Death, Hospitalization)
  Sender: FDA-Public Use
  Company Number: 2012SGN00158

PATIENT
  Age: 60 Year
  Sex: Male

DRUGS (1)
  1. ADCETRIS [Suspect]
     Indication: ANAPLASTIC LARGE CELL LYMPHOMA T- AND NULL-CELL TYPES
     Dosage: 1.8 MG/KG, Q12D, INTRAVENOUS
     Route: 042

REACTIONS (4)
  - ACIDOSIS [None]
  - ANAPLASTIC LARGE CELL LYMPHOMA T- AND NULL-CELL TYPES [None]
  - NEOPLASM PROGRESSION [None]
  - TACHYCARDIA [None]
